FAERS Safety Report 9922135 (Version 1)
Quarter: 2014Q1

REPORT INFORMATION
  Report Type: Spontaneous
  Country: US (occurrence: None)
  Receive Date: 20140224
  Receipt Date: 20140224
  Transmission Date: 20141002
  Serious: Yes (Other)
  Sender: FDA-Public Use
  Company Number: None

PATIENT
  Sex: 0

DRUGS (1)
  1. FACTOR IX COMPLEX BEBULIN 20 ML BAXTER [Suspect]
     Dates: start: 20140220, end: 20140220

REACTIONS (1)
  - Product contamination physical [None]
